FAERS Safety Report 5092998-6 (Version None)
Quarter: 2006Q3

REPORT INFORMATION
  Report Type: 
  Country: None (occurrence: None)
  Receive Date: 20060830
  Receipt Date: 20060825
  Transmission Date: 20061208
  Serious: Yes (Hospitalization)
  Sender: FDA-Public Use
  Company Number: TH-GLAXOSMITHKLINE-B0436185A

PATIENT
  Age: 20 Year
  Sex: Male
  Weight: 48.7 kg

DRUGS (4)
  1. COMBIVIR [Suspect]
     Indication: HIV INFECTION
     Dosage: 1TAB TWICE PER DAY
     Route: 048
     Dates: start: 20060808, end: 20060816
  2. EFAVIRENZ [Suspect]
     Indication: HIV INFECTION
     Dosage: 600MG AT NIGHT
     Route: 048
     Dates: start: 20060808, end: 20060816
  3. COTRIMOXAZOLE [Concomitant]
  4. PSEUDOEPHEDRINE HCL [Concomitant]

REACTIONS (12)
  - CHILLS [None]
  - DIARRHOEA [None]
  - DRUG HYPERSENSITIVITY [None]
  - FACE OEDEMA [None]
  - FATIGUE [None]
  - HEADACHE [None]
  - HYPOAESTHESIA [None]
  - NASAL CONGESTION [None]
  - NAUSEA [None]
  - PYREXIA [None]
  - RASH MACULO-PAPULAR [None]
  - RASH PRURITIC [None]
